FAERS Safety Report 6019772-8 (Version None)
Quarter: 2008Q4

REPORT INFORMATION
  Report Type: 
  Country: None (occurrence: None)
  Receive Date: 20081224
  Receipt Date: 20081219
  Transmission Date: 20090506
  Serious: Yes (Other)
  Sender: FDA-Public Use
  Company Number: US-GENENTECH-268173

PATIENT
  Sex: Female
  Weight: 58.957 kg

DRUGS (6)
  1. XOLAIR [Suspect]
     Indication: ASTHMA
     Dosage: 375 MG, Q2W
     Route: 058
     Dates: start: 20070701
  2. XOLAIR [Suspect]
     Indication: HYPERSENSITIVITY
  3. ADVAIR DISKUS 250/50 [Concomitant]
     Indication: ASTHMA
     Dosage: UNK
     Dates: start: 20070101
  4. ALLEGRA [Concomitant]
     Indication: DRUG USE FOR UNKNOWN INDICATION
     Dosage: UNK
     Route: 048
     Dates: start: 20060101
  5. ALBUTEROL [Concomitant]
     Indication: ASTHMA
     Dosage: 2 PUFF, PRN
     Dates: start: 20060101
  6. RHINOCORT [Concomitant]
     Indication: DRUG USE FOR UNKNOWN INDICATION
     Dosage: 2 PUFF, QD
     Route: 045
     Dates: start: 20060101

REACTIONS (1)
  - WHEEZING [None]
